FAERS Safety Report 8510503-6 (Version None)
Quarter: 2012Q3

REPORT INFORMATION
  Report Type: 
  Country: None (occurrence: None)
  Receive Date: 20120716
  Receipt Date: 20120702
  Transmission Date: 20120928
  Serious: Yes (Death, Life-Threatening, Hospitalization)
  Sender: FDA-Public Use
  Company Number: FR-BRISTOL-MYERS SQUIBB COMPANY-16598310

PATIENT
  Age: 69 Year
  Sex: Female
  Weight: 55 kg

DRUGS (10)
  1. SOTALOL HCL [Concomitant]
  2. CANDESARTAN CILEXETIL [Concomitant]
  3. LERCANIDIPINE [Concomitant]
  4. POLYETHYLENE GLYCOL [Concomitant]
  5. LEVOTHYROXINE SODIUM [Concomitant]
     Indication: HYPOTHYROIDISM
     Route: 048
  6. ARESTAL [Concomitant]
     Indication: DIARRHOEA
     Route: 048
     Dates: start: 20111001
  7. IPILIMUMAB [Suspect]
     Indication: MALIGNANT MELANOMA
     Dosage: 1 DF: 5 MG/ML, 3 COURSES,3 MG/KG 2 INF:21NOV11 3 INF:02JAN12
     Route: 042
     Dates: start: 20111027
  8. FURADANTIN [Concomitant]
  9. PRAVASTATIN [Concomitant]
  10. ZOLPIDEM TARTRATE [Concomitant]
     Indication: SLEEP DISORDER
     Dosage: 1 DF: 1 TABLET,FOR SEVERAL YEARS,UNTIL DEATH
     Route: 048

REACTIONS (5)
  - DEATH [None]
  - DIABETIC KETOACIDOSIS [None]
  - DIABETES MELLITUS [None]
  - RENAL FAILURE ACUTE [None]
  - THROMBOCYTOPENIA [None]
